FAERS Safety Report 6855843-1 (Version None)
Quarter: 2010Q3

REPORT INFORMATION
  Report Type: 
  Country: None (occurrence: None)
  Receive Date: 20100715
  Receipt Date: 20100715
  Transmission Date: 20110219
  Serious: Yes (Hospitalization)
  Sender: FDA-Public Use
  Company Number: None

PATIENT
  Sex: Male

DRUGS (2)
  1. DECITABINE MGI PHARMA, INC. [Suspect]
     Indication: MYELODYSPLASTIC SYNDROME
     Dosage: DECITABINE 22 MG/DAY CYCLE QMON-FRIX2 IV
     Route: 042
     Dates: start: 20100503, end: 20100517
  2. DECITABINE MGI PHARMA, INC. [Suspect]
     Indication: MYELODYSPLASTIC SYNDROME
     Dosage: DECITABINE 22 MG/DAY CYCLE QMON-FRIX2 IV
     Route: 042
     Dates: start: 20100607, end: 20100618

REACTIONS (2)
  - DIFFUSE ALVEOLAR DAMAGE [None]
  - LUNG INFILTRATION [None]
